FAERS Safety Report 10245466 (Version 2)
Quarter: 2014Q2

REPORT INFORMATION
  Report Type: Report from Study
  Country: NL (occurrence: NL)
  Receive Date: 20140618
  Receipt Date: 20140618
  Transmission Date: 20141212
  Serious: Yes (Other)
  Sender: FDA-Public Use
  Company Number: NL-ABBVIE-14P-114-1243775-00

PATIENT
  Age: 81 Year
  Sex: Male
  Weight: 90 kg

DRUGS (7)
  1. LUCRIN [Suspect]
     Indication: PROSTATE CANCER
     Route: 058
     Dates: start: 20130820
  2. MORPHINE [Concomitant]
     Indication: PAIN
     Dosage: PATCH
     Route: 058
  3. DICLOFENAC [Concomitant]
     Indication: PAIN
     Route: 048
  4. FENTANYL [Concomitant]
     Indication: PAIN
     Dosage: PATCH
  5. SYMBICOCT [Concomitant]
     Indication: CHRONIC OBSTRUCTIVE PULMONARY DISEASE
     Route: 055
     Dates: start: 1994
  6. LACTULOSE [Concomitant]
     Indication: ABNORMAL FAECES
     Route: 048
     Dates: start: 1994
  7. ACENOCOUMAROL [Concomitant]
     Indication: ANTICOAGULANT THERAPY
     Dosage: ACCORDING SCHEDULE
     Route: 048
     Dates: start: 2012

REACTIONS (4)
  - Lung neoplasm malignant [Not Recovered/Not Resolved]
  - Pulmonary pain [Recovered/Resolved]
  - Pulmonary pain [Not Recovered/Not Resolved]
  - Tumour pain [Unknown]
